FAERS Safety Report 12368649 (Version 1)
Quarter: 2016Q2

REPORT INFORMATION
  Report Type: Report from Study
  Country: VN (occurrence: VN)
  Receive Date: 20160513
  Receipt Date: 20160513
  Transmission Date: 20160815
  Serious: Yes (Death)
  Sender: FDA-Public Use
  Company Number: VN-009507513-1605VNM005347

PATIENT
  Sex: Female

DRUGS (1)
  1. JANUMET [Suspect]
     Active Substance: METFORMIN HYDROCHLORIDE\SITAGLIPTIN PHOSPHATE
     Dosage: 1 TABLET TWICE A DAY (1 IN THE MORNING AND 1 IN THE AFTERNOON)
     Route: 048
     Dates: start: 20040604

REACTIONS (1)
  - Diabetic complication [Fatal]
